FAERS Safety Report 7300865-X (Version None)
Quarter: 2011Q1

REPORT INFORMATION
  Report Type: 
  Country: None (occurrence: None)
  Receive Date: 20110218
  Receipt Date: 20110209
  Transmission Date: 20110831
  Serious: Yes (Other)
  Sender: FDA-Public Use
  Company Number: PHHY2011CA10722

PATIENT
  Sex: Female

DRUGS (2)
  1. ACLASTA [Suspect]
     Dates: start: 20100413
  2. ACLASTA [Suspect]
     Indication: OSTEOPOROSIS
     Dates: start: 20090429

REACTIONS (6)
  - PAIN IN JAW [None]
  - ORAL PAIN [None]
  - PAIN [None]
  - TOOTHACHE [None]
  - GINGIVAL ABSCESS [None]
  - GINGIVITIS [None]
